FAERS Safety Report 7624178-1 (Version None)
Quarter: 2011Q3

REPORT INFORMATION
  Report Type: 
  Country: None (occurrence: None)
  Receive Date: 20110720
  Receipt Date: 20110720
  Transmission Date: 20111222
  Serious: No
  Sender: FDA-Public Use
  Company Number: None

PATIENT
  Sex: Female

DRUGS (1)
  1. HYPERRHO S/D [Suspect]
     Indication: RHESUS INCOMPATIBILITY
     Route: 030

REACTIONS (2)
  - RHESUS ANTIBODIES POSITIVE [None]
  - PRODUCT QUALITY ISSUE [None]
